FAERS Safety Report 16995381 (Version 2)
Quarter: 2019Q4

REPORT INFORMATION
  Report Type: Spontaneous
  Country: US (occurrence: US)
  Receive Date: 20191105
  Receipt Date: 20191204
  Transmission Date: 20200122
  Serious: Yes (Death)
  Sender: FDA-Public Use
  Company Number: US-ASTRAZENECA-2019SF56038

PATIENT
  Age: 184 Day
  Sex: Female

DRUGS (4)
  1. FERROUS SULF [Concomitant]
     Active Substance: FERROUS SULFATE
  2. HYDROXYZ HCL [Concomitant]
     Active Substance: HYDROXYZINE HYDROCHLORIDE
  3. RANITIDINE. [Concomitant]
     Active Substance: RANITIDINE
  4. SYNAGIS [Suspect]
     Active Substance: PALIVIZUMAB
     Indication: LARYNGEAL STENOSIS
     Route: 030
     Dates: start: 20190926, end: 20190930

REACTIONS (1)
  - Death [Fatal]

NARRATIVE: CASE EVENT DATE: 20190930
